FAERS Safety Report 14871029 (Version 2)
Quarter: 2018Q2

REPORT INFORMATION
  Report Type: Spontaneous
  Country: SA (occurrence: SA)
  Receive Date: 20180509
  Receipt Date: 20180523
  Transmission Date: 20180711
  Serious: Yes (Other)
  Sender: FDA-Public Use
  Company Number: SA-GLAXOSMITHKLINE-SA2018081255

PATIENT
  Age: 48 Year
  Sex: Female

DRUGS (1)
  1. DICLAC [Suspect]
     Active Substance: DICLOFENAC
     Indication: MIGRAINE
     Dosage: 75 MG, UNK
     Route: 065
     Dates: start: 201804

REACTIONS (1)
  - Palpitations [Recovered/Resolved]
